FAERS Safety Report 15241301 (Version 1)
Quarter: 2018Q4

REPORT INFORMATION
  Report Type: Spontaneous
  Country: FR (occurrence: FR)
  Receive Date: 20180805
  Receipt Date: 20180805
  Transmission Date: 20190204
  Serious: Yes (Hospitalization)
  Sender: FDA-Public Use
  Company Number: FR-AUROBINDO-AUR-APL-2018-038925

PATIENT
  Age: 66 Year
  Sex: Female
  Weight: 86 kg

DRUGS (3)
  1. AVASTIN [Suspect]
     Active Substance: BEVACIZUMAB
     Indication: LUNG NEOPLASM MALIGNANT
     Dosage: 650 MILLIGRAM, CYCLICAL
     Route: 041
     Dates: start: 20180619, end: 20180619
  2. ALIMTA [Suspect]
     Active Substance: PEMETREXED DISODIUM
     Indication: LUNG NEOPLASM MALIGNANT
     Dosage: 950 MILLIGRAM, CYCLICAL
     Route: 041
     Dates: start: 20180619, end: 20180619
  3. CARBOPLATIN. [Suspect]
     Active Substance: CARBOPLATIN
     Indication: LUNG NEOPLASM MALIGNANT
     Dosage: 590 MILLIGRAM, CYCLICAL
     Route: 041
     Dates: start: 20180619, end: 20180619

REACTIONS (1)
  - Skin hyperpigmentation [Recovering/Resolving]

NARRATIVE: CASE EVENT DATE: 201806
